FAERS Safety Report 5055440-7 (Version None)
Quarter: 2006Q3

REPORT INFORMATION
  Report Type: 
  Country: None (occurrence: None)
  Receive Date: 20060714
  Receipt Date: 20060626
  Transmission Date: 20061208
  Serious: Yes (Other)
  Sender: FDA-Public Use
  Company Number: CA200606005608

PATIENT
  Age: 16 Year
  Sex: Male
  Weight: 65.8 kg

DRUGS (2)
  1. STRATTERA [Suspect]
     Indication: ATTENTION DEFICIT/HYPERACTIVITY DISORDER
     Dosage: 68MG, EACH MORNING, ORAL
     Route: 048
     Dates: end: 20060625
  2. STRATTERA [Suspect]
     Dosage: 18 MG, EACH MORNING, ORAL
     Route: 048
     Dates: end: 20060625

REACTIONS (3)
  - BLOOD BILIRUBIN INCREASED [None]
  - FATIGUE [None]
  - OCULAR ICTERUS [None]
